FAERS Safety Report 22377202 (Version 1)
Quarter: 2023Q2

REPORT INFORMATION
  Report Type: Spontaneous
  Country: BR (occurrence: BR)
  Receive Date: 20230529
  Receipt Date: 20230529
  Transmission Date: 20230722
  Serious: Yes (Hospitalization)
  Sender: FDA-Public Use
  Company Number: BR-NOVOPROD-1066772

PATIENT
  Age: 62 Year
  Sex: Female

DRUGS (1)
  1. OZEMPIC [Suspect]
     Active Substance: SEMAGLUTIDE
     Indication: Product used for unknown indication
     Dosage: 1 MG, QW
     Dates: start: 20230428, end: 20230509

REACTIONS (4)
  - Hypokalaemia [Unknown]
  - Hypophosphataemia [Unknown]
  - Asthenia [Unknown]
  - Nausea [Unknown]

NARRATIVE: CASE EVENT DATE: 20230101
